FAERS Safety Report 21165904 (Version 3)
Quarter: 2024Q2

REPORT INFORMATION
  Report Type: Report from Study
  Country: IN (occurrence: IN)
  Receive Date: 20220803
  Receipt Date: 20240528
  Transmission Date: 20240716
  Serious: Yes (Hospitalization, Other)
  Sender: FDA-Public Use
  Company Number: IN-NOVARTISPH-NVSC2022IN172233

PATIENT
  Age: 3 Year
  Sex: Female

DRUGS (2)
  1. NEORAL [Suspect]
     Active Substance: CYCLOSPORINE
     Indication: Renal impairment
     Dosage: 0.25 ML, BID
     Route: 065
     Dates: start: 202105
  2. NEORAL [Suspect]
     Active Substance: CYCLOSPORINE
     Dosage: UNK
     Route: 048

REACTIONS (6)
  - Hirsutism [Not Recovered/Not Resolved]
  - Face crushing [Recovered/Resolved]
  - Autism spectrum disorder [Not Recovered/Not Resolved]
  - Nasal disorder [Recovered/Resolved]
  - Dysphonia [Not Recovered/Not Resolved]
  - Off label use [Unknown]

NARRATIVE: CASE EVENT DATE: 20210701
